FAERS Safety Report 8092023-9 (Version None)
Quarter: 2012Q1

REPORT INFORMATION
  Report Type: 
  Country: None (occurrence: None)
  Receive Date: 20120129
  Receipt Date: 20111123
  Transmission Date: 20120608
  Serious: No
  Sender: FDA-Public Use
  Company Number: US-ABBOTT-11P-163-0868714-00

PATIENT
  Age: 50 Year
  Sex: Male

DRUGS (4)
  1. MELATONIN [Concomitant]
     Indication: INSOMNIA
  2. PREDNISONE TAB [Concomitant]
     Indication: PRODUCT USED FOR UNKNOWN INDICATION
     Dosage: 2 -5 MG TODAY + 1 TOMMORROW AND THEN WILL BE DONE
  3. HUMIRA [Suspect]
     Indication: COLITIS ULCERATIVE
     Dosage: LOADING DOSE
     Dates: start: 20111025, end: 20111025
  4. HUMIRA [Suspect]

REACTIONS (3)
  - INJECTION SITE PAIN [None]
  - HAEMATOCHEZIA [None]
  - LACERATION [None]
